FAERS Safety Report 18091406 (Version 1)
Quarter: 2020Q3

REPORT INFORMATION
  Report Type: Spontaneous
  Country: US (occurrence: US)
  Receive Date: 20200729
  Receipt Date: 20200729
  Transmission Date: 20201103
  Serious: Yes (Other)
  Sender: FDA-Public Use
  Company Number: None

PATIENT
  Age: 49 Year
  Sex: Female
  Weight: 60.75 kg

DRUGS (1)
  1. JEUVEAU [Suspect]
     Active Substance: PRABOTULINUMTOXINA-XVFS
     Indication: SKIN WRINKLING
     Dosage: ?          OTHER FREQUENCY:EVERY 4 MONTHS;?
     Route: 023
     Dates: start: 20200703, end: 20200703

REACTIONS (1)
  - Muscle twitching [None]

NARRATIVE: CASE EVENT DATE: 20200709
